FAERS Safety Report 18639950 (Version 1)
Quarter: 2020Q4

REPORT INFORMATION
  Report Type: Spontaneous
  Country: US (occurrence: US)
  Receive Date: 20201220
  Receipt Date: 20201220
  Transmission Date: 20210114
  Serious: No
  Sender: FDA-Public Use
  Company Number: US-PACIRA-202000068

PATIENT

DRUGS (3)
  1. EXPAREL [Suspect]
     Active Substance: BUPIVACAINE
     Indication: SURGERY
     Dosage: 2/3 OF SYRINGE (EXPAREL+ BUPIVACAINE + LIDOCAINE)
  2. LIDOCAINE. [Suspect]
     Active Substance: LIDOCAINE
     Indication: SURGERY
     Dosage: 2/3 OF SYRINGE (EXPAREL+ BUPIVACAINE + LIDOCAINE)
  3. BUPIVACAINE. [Suspect]
     Active Substance: BUPIVACAINE
     Indication: SURGERY
     Dosage: 2/3 OF SYRINGE (EXPAREL+ BUPIVACAINE + LIDOCAINE)

REACTIONS (2)
  - No adverse event [Unknown]
  - Labelled drug-drug interaction medication error [Unknown]
